FAERS Safety Report 6184134-X (Version None)
Quarter: 2009Q2

REPORT INFORMATION
  Report Type: 
  Country: None (occurrence: None)
  Receive Date: 20090508
  Receipt Date: 20090505
  Transmission Date: 20091009
  Serious: Yes (Other)
  Sender: FDA-Public Use
  Company Number: PHEH2008US07678

PATIENT
  Sex: Female
  Weight: 60.317 kg

DRUGS (10)
  1. TEKTURNA [Suspect]
     Indication: HYPERTENSION
     Dosage: 150 MG, QD
     Route: 048
     Dates: start: 20070101
  2. TEKTURNA [Suspect]
     Indication: ESSENTIAL HYPERTENSION
     Dosage: 150 MG, BID
     Dates: start: 20080820
  3. TEKTURNA [Suspect]
     Dosage: 300 MG A DAY
  4. HYDROCHLOROTHIAZIDE [Concomitant]
     Indication: ESSENTIAL HYPERTENSION
     Dosage: UNK
  5. LIPITOR [Concomitant]
  6. LEVOTHYROXINE SODIUM [Concomitant]
  7. CHONDROITIN SULFATE [Concomitant]
  8. CALCIUM WITH VITAMIN D [Concomitant]
  9. VITAMIN D [Concomitant]
  10. FISH OIL [Concomitant]

REACTIONS (3)
  - BLOOD PRESSURE DIASTOLIC INCREASED [None]
  - DRUG INEFFECTIVE [None]
  - HEADACHE [None]
